FAERS Safety Report 16288643 (Version 1)
Quarter: 2019Q2

REPORT INFORMATION
  Report Type: Spontaneous
  Country: US (occurrence: US)
  Receive Date: 20190509
  Receipt Date: 20190509
  Transmission Date: 20190711
  Serious: No
  Sender: FDA-Public Use
  Company Number: US-TEVA-2019-US-1045012

PATIENT
  Sex: Female

DRUGS (1)
  1. ZECUITY [Suspect]
     Active Substance: SUMATRIPTAN SUCCINATE
     Route: 065
     Dates: start: 20190423

REACTIONS (4)
  - Pruritus [Unknown]
  - Hypersensitivity [Unknown]
  - Erythema [Unknown]
  - Burning sensation [Unknown]
